FAERS Safety Report 18980826 (Version 3)
Quarter: 2022Q2

REPORT INFORMATION
  Report Type: Spontaneous
  Country: ES (occurrence: ES)
  Receive Date: 20210308
  Receipt Date: 20220426
  Transmission Date: 20220721
  Serious: Yes (Hospitalization)
  Sender: FDA-Public Use
  Company Number: ES-KRKA-ES2021K02120LIT

PATIENT
  Age: 75 Year
  Sex: Male

DRUGS (22)
  1. ATORVASTATIN CALCIUM [Suspect]
     Active Substance: ATORVASTATIN CALCIUM
     Indication: Dyslipidaemia
     Dosage: 20 MG, PER DAY
  2. EPLERENONE [Suspect]
     Active Substance: EPLERENONE
     Indication: Cardiac failure congestive
     Dosage: 25 MG, 1X/DAY
  3. EPLERENONE [Suspect]
     Active Substance: EPLERENONE
     Dosage: 50 MG, 1X/DAY
  4. TAMSULOSIN HYDROCHLORIDE [Suspect]
     Active Substance: TAMSULOSIN HYDROCHLORIDE
     Dosage: 0.4 MG, PER DAY
  5. FLUTICASONE PROPIONATE\SALMETEROL XINAFOATE [Suspect]
     Active Substance: FLUTICASONE PROPIONATE\SALMETEROL XINAFOATE
     Indication: Dyspnoea
     Dosage: 25MCG/125MCG, 2 TIMES PER DAY
  6. FLUTICASONE PROPIONATE\SALMETEROL XINAFOATE [Suspect]
     Active Substance: FLUTICASONE PROPIONATE\SALMETEROL XINAFOATE
     Indication: Chronic obstructive pulmonary disease
  7. ALLOPURINOL [Suspect]
     Active Substance: ALLOPURINOL
     Indication: Hyperuricaemia
     Dosage: 300 MG, PER DAY
  8. AMIODARONE HYDROCHLORIDE [Suspect]
     Active Substance: AMIODARONE HYDROCHLORIDE
     Indication: Ventricular tachycardia
     Dosage: 200 MG, DAILY
  9. LEVOSIMENDAN [Suspect]
     Active Substance: LEVOSIMENDAN
     Indication: Cardiac failure congestive
     Dosage: UNK
  10. ACENOCOUMAROL [Suspect]
     Active Substance: ACENOCOUMAROL
     Indication: Atrial fibrillation
     Dosage: UNK
  11. TIOTROPIUM [Suspect]
     Active Substance: TIOTROPIUM
     Indication: Chronic obstructive pulmonary disease
     Dosage: 18 UG, PER DAY
  12. ALBUTEROL [Suspect]
     Active Substance: ALBUTEROL
     Indication: Dyspnoea
     Dosage: UNK
  13. BISOPROLOL FUMARATE [Suspect]
     Active Substance: BISOPROLOL FUMARATE
     Indication: Cardiac failure congestive
     Dosage: 1.25 MG, 2X PER DAY
  14. LEVOTHYROXINE [Suspect]
     Active Substance: LEVOTHYROXINE
     Indication: Hypothyroidism
     Dosage: 75 UG, PER DAY
  15. FUROSEMIDE [Suspect]
     Active Substance: FUROSEMIDE
     Indication: Hyperaemia
     Dosage: 80 MG, 1X/DAY
     Dates: start: 201802
  16. FUROSEMIDE [Suspect]
     Active Substance: FUROSEMIDE
     Dosage: 120 MG, PER DAY
  17. FUROSEMIDE [Suspect]
     Active Substance: FUROSEMIDE
     Dosage: 250 MG
     Route: 042
  18. ENALAPRIL [Suspect]
     Active Substance: ENALAPRIL
     Indication: Cardiac failure congestive
     Dosage: 2.5 MG, PER DAY
  19. MORPHINE [Suspect]
     Active Substance: MORPHINE
     Indication: Dyspnoea
     Dosage: IF NEEDED
  20. DIGOXIN [Suspect]
     Active Substance: DIGOXIN
     Indication: Cardiac failure congestive
     Dosage: 0.25 MG, 3/7 DAYS.
  21. DIGOXIN [Suspect]
     Active Substance: DIGOXIN
     Dosage: 0.13 MG, 1X/DAY
  22. CARVEDILOL [Suspect]
     Active Substance: CARVEDILOL
     Dosage: 3.13 MG/DAY DEPENDING ON BLOOD PRESSURE

REACTIONS (4)
  - Hypotension [Unknown]
  - Drug ineffective [Unknown]
  - Hypothyroidism [Unknown]
  - Constipation [Recovering/Resolving]
